FAERS Safety Report 16940301 (Version 1)
Quarter: 2019Q4

REPORT INFORMATION
  Report Type: Spontaneous
  Country: US (occurrence: US)
  Receive Date: 20191021
  Receipt Date: 20191021
  Transmission Date: 20200122
  Serious: Yes (Hospitalization)
  Sender: FDA-Public Use
  Company Number: US-SMITH AND NEPHEW, INC-2019SMT00076

PATIENT
  Age: 88 Year
  Sex: Female
  Weight: 54.42 kg

DRUGS (2)
  1. COLLAGENASE SANTYL [Suspect]
     Active Substance: COLLAGENASE CLOSTRIDIUM HISTOLYTICUM
     Indication: WOUND
     Dosage: A THIN FILM ABOUT THE SIZE OF A QUARTER, 1X/DAY TO RIGHT ANKLE WOUND
     Route: 061
  2. COLLAGENASE SANTYL [Suspect]
     Active Substance: COLLAGENASE CLOSTRIDIUM HISTOLYTICUM
     Dosage: A THIN FILM ABOUT THE SIZE OF A QUARTER, 1X/DAY TO RIGHT ANKLE WOUND
     Route: 061

REACTIONS (4)
  - Product dose omission [Not Recovered/Not Resolved]
  - Hospitalisation [Recovered/Resolved]
  - Application site pain [Recovered/Resolved]
  - Therapeutic product effect decreased [Recovered/Resolved]

NARRATIVE: CASE EVENT DATE: 201902
